FAERS Safety Report 8595438-5 (Version None)
Quarter: 2012Q3

REPORT INFORMATION
  Report Type: 
  Country: None (occurrence: None)
  Receive Date: 20120815
  Receipt Date: 20120726
  Transmission Date: 20120928
  Serious: No
  Sender: FDA-Public Use
  Company Number: US-BRISTOL-MYERS SQUIBB COMPANY-16779159

PATIENT
  Age: 66 Year
  Sex: Male

DRUGS (3)
  1. ACTOS [Concomitant]
  2. ONGLYZA [Suspect]
     Indication: TYPE 2 DIABETES MELLITUS
     Dosage: 30 DOSES
     Route: 048
     Dates: start: 20111213, end: 20120126
  3. AVANDIA [Concomitant]

REACTIONS (1)
  - URTICARIA [None]
